FAERS Safety Report 23301524 (Version 2)
Quarter: 2023Q4

REPORT INFORMATION
  Report Type: Report from Study
  Country: FR (occurrence: FR)
  Receive Date: 20231215
  Receipt Date: 20231229
  Transmission Date: 20240110
  Serious: Yes (Life-Threatening, Hospitalization)
  Sender: FDA-Public Use
  Company Number: FR-SA-SAC20231214000628

PATIENT
  Age: 47 Year
  Sex: Female

DRUGS (9)
  1. ISATUXIMAB [Suspect]
     Active Substance: ISATUXIMAB
     Indication: Stem cell transplant
     Dosage: UNK
     Dates: start: 20230317, end: 20230317
  2. ISATUXIMAB [Suspect]
     Active Substance: ISATUXIMAB
     Dosage: UNK
     Dates: start: 20230901, end: 20230901
  3. CARFILZOMIB [Suspect]
     Active Substance: CARFILZOMIB
     Indication: Stem cell transplant
     Dosage: UNK
     Dates: start: 20230317, end: 20230317
  4. CARFILZOMIB [Suspect]
     Active Substance: CARFILZOMIB
     Dosage: UNK
     Dates: start: 20230901, end: 20230901
  5. LENALIDOMIDE [Suspect]
     Active Substance: LENALIDOMIDE
     Indication: Stem cell transplant
     Dosage: UNK
     Dates: start: 20230317, end: 20230317
  6. LENALIDOMIDE [Suspect]
     Active Substance: LENALIDOMIDE
     Dosage: UNK
     Dates: start: 20230907, end: 20230907
  7. DEXAMETHASONE [Suspect]
     Active Substance: DEXAMETHASONE
     Indication: Stem cell transplant
     Dosage: UNK
     Dates: start: 20220317, end: 20220317
  8. DEXAMETHASONE [Suspect]
     Active Substance: DEXAMETHASONE
     Dosage: UNK
     Dates: start: 20230908, end: 20230908
  9. MELPHALAN [Suspect]
     Active Substance: MELPHALAN
     Dosage: 400 MG
     Dates: start: 20231002

REACTIONS (1)
  - Cardiogenic shock [Recovered/Resolved with Sequelae]

NARRATIVE: CASE EVENT DATE: 20231211
